FAERS Safety Report 5580135-0 (Version None)
Quarter: 2007Q4

REPORT INFORMATION
  Report Type: 
  Country: None (occurrence: None)
  Receive Date: 20071227
  Receipt Date: 20071227
  Transmission Date: 20080405
  Serious: Yes (Hospitalization)
  Sender: FDA-Public Use
  Company Number: None

PATIENT
  Age: 54 Year
  Sex: Male
  Weight: 102 kg

DRUGS (1)
  1. ALDESLEUKIN  22,000,000 UNIT [Suspect]
     Indication: METASTATIC MALIGNANT MELANOMA
     Dosage: 75000000 UNITS Q8H IV BOLUS
     Route: 040
     Dates: start: 20071016, end: 20071019

REACTIONS (7)
  - DIARRHOEA [None]
  - HEPATIC ENZYME INCREASED [None]
  - PAIN IN JAW [None]
  - PLATELET COUNT DECREASED [None]
  - RENAL FAILURE ACUTE [None]
  - RETCHING [None]
  - VENTRICULAR TACHYCARDIA [None]
